FAERS Safety Report 23135603 (Version 1)
Quarter: 2023Q4

REPORT INFORMATION
  Report Type: Spontaneous
  Country: FR (occurrence: FR)
  Receive Date: 20231101
  Receipt Date: 20231101
  Transmission Date: 20240110
  Serious: Yes (Life-Threatening)
  Sender: FDA-Public Use
  Company Number: None

PATIENT
  Age: 65 Year
  Sex: Female
  Weight: 67 kg

DRUGS (4)
  1. CYTARABINE [Interacting]
     Active Substance: CYTARABINE
     Indication: Non-Hodgkin^s lymphoma
     Dosage: 340 MG, 1X/DAY
     Route: 042
     Dates: start: 20230906, end: 20230909
  2. CARMUSTINE [Interacting]
     Active Substance: CARMUSTINE
     Indication: Non-Hodgkin^s lymphoma
     Dosage: 500 MG, SINGLE
     Route: 042
     Dates: start: 20230905, end: 20230905
  3. MELPHALAN [Interacting]
     Active Substance: MELPHALAN
     Indication: Non-Hodgkin^s lymphoma
     Dosage: 240 MG, SINGLE
     Route: 042
     Dates: start: 20230910, end: 20230910
  4. ETOPOSIDE [Interacting]
     Active Substance: ETOPOSIDE
     Indication: Non-Hodgkin^s lymphoma
     Dosage: 340 MG, 1X/DAY
     Route: 042
     Dates: start: 20230906, end: 20230909

REACTIONS (7)
  - Febrile bone marrow aplasia [Not Recovered/Not Resolved]
  - Sepsis [Recovering/Resolving]
  - Neutropenic colitis [Recovered/Resolved]
  - Septic shock [Recovered/Resolved]
  - Fungaemia [Recovering/Resolving]
  - Lung disorder [Recovered/Resolved]
  - Drug interaction [Recovered/Resolved]

NARRATIVE: CASE EVENT DATE: 20230912
